FAERS Safety Report 6018527-8 (Version None)
Quarter: 2008Q4

REPORT INFORMATION
  Report Type: 
  Country: None (occurrence: None)
  Receive Date: 20081223
  Receipt Date: 20081211
  Transmission Date: 20090506
  Serious: Yes (Death)
  Sender: FDA-Public Use
  Company Number: JP-PFIZER INC-2008091944

PATIENT

DRUGS (6)
  1. GABAPEN [Suspect]
     Indication: NEURALGIA
     Route: 048
     Dates: start: 20080405, end: 20080406
  2. MORPHINE HCL ELIXIR [Suspect]
     Indication: PAIN
     Route: 042
     Dates: start: 20080405
  3. MAGNESIUM OXIDE [Concomitant]
     Route: 048
     Dates: start: 20080405
  4. DEXAMETHASONE [Concomitant]
     Route: 042
     Dates: start: 20080405
  5. FAMOTIDINE [Concomitant]
     Route: 042
     Dates: start: 20080405
  6. FLURBIPROFEN [Concomitant]
     Route: 042
     Dates: start: 20080405

REACTIONS (4)
  - AGITATION [None]
  - ALTERED STATE OF CONSCIOUSNESS [None]
  - DEATH [None]
  - MYOCLONUS [None]
